FAERS Safety Report 11202931 (Version 5)
Quarter: 2015Q4

REPORT INFORMATION
  Report Type: Report from Study
  Country: PL (occurrence: PL)
  Receive Date: 20150619
  Receipt Date: 20151124
  Transmission Date: 20160304
  Serious: Yes (Hospitalization)
  Sender: FDA-Public Use
  Company Number: PL-BIOGENIDEC-2015BI080847

PATIENT
  Age: 41 Year
  Sex: Female
  Weight: 61 kg

DRUGS (4)
  1. SODIUM VALPROATE [Concomitant]
     Active Substance: VALPROATE SODIUM
     Indication: HYPOMANIA
     Route: 048
     Dates: start: 20150511, end: 20150528
  2. BLINDED THERAPY [Concomitant]
     Active Substance: INVESTIGATIONAL PRODUCT
     Route: 042
     Dates: start: 20140227
  3. AVONEX [Suspect]
     Active Substance: INTERFERON BETA-1A
     Indication: MULTIPLE SCLEROSIS
  4. KWETIAPINA [Concomitant]
     Indication: HYPOMANIA
     Route: 048
     Dates: start: 20150511, end: 20150528

REACTIONS (1)
  - Bipolar I disorder [Recovered/Resolved with Sequelae]

NARRATIVE: CASE EVENT DATE: 20150529
